FAERS Safety Report 18088250 (Version 2)
Quarter: 2020Q3

REPORT INFORMATION
  Report Type: Report from Study
  Country: CN (occurrence: CN)
  Receive Date: 20200729
  Receipt Date: 20200813
  Transmission Date: 20201103
  Serious: Yes (Death, Life-Threatening)
  Sender: FDA-Public Use
  Company Number: CN-ELI_LILLY_AND_COMPANY-CN202007010866

PATIENT
  Age: 44 Year
  Sex: Female
  Weight: 58 kg

DRUGS (10)
  1. MORPHINE SULFATE. [Concomitant]
     Active Substance: MORPHINE SULFATE
     Indication: BACK PAIN
     Dosage: UNK, UNKNOWN
     Route: 065
     Dates: start: 20200417, end: 20200723
  2. FERROUS SULFATE;FOLIC ACID [Concomitant]
     Indication: ANAEMIA
     Dosage: UNK, UNKNOWN
     Route: 065
     Dates: start: 20200630, end: 20200723
  3. WHOLE BLOOD ACD [Concomitant]
     Indication: ANAEMIA
     Dosage: 2 U
     Route: 042
     Dates: start: 20200630
  4. SELPERCATINIB. [Suspect]
     Active Substance: SELPERCATINIB
     Dosage: 120 MG, BID
     Route: 048
     Dates: start: 20200707, end: 20200723
  5. XARELTO [Concomitant]
     Active Substance: RIVAROXABAN
     Indication: EMBOLISM
     Dosage: UNK, UNKNOWN
     Route: 065
     Dates: start: 20200428
  6. SELPERCATINIB. [Suspect]
     Active Substance: SELPERCATINIB
     Indication: NEOPLASM MALIGNANT
     Dosage: 160 MG, BID
     Route: 048
     Dates: start: 20200423, end: 20200620
  7. OXYCONTIN [Concomitant]
     Active Substance: OXYCODONE HYDROCHLORIDE
     Indication: BACK PAIN
     Dosage: UNK, UNKNOWN
     Route: 065
     Dates: start: 20200417
  8. LACTULOSE. [Concomitant]
     Active Substance: LACTULOSE
     Indication: CONSTIPATION
     Dosage: UNK, UNKNOWN
     Route: 065
     Dates: start: 20200630, end: 20200723
  9. RED BLOOD CELLS [Concomitant]
     Active Substance: HUMAN RED BLOOD CELL
     Dosage: 2 U, UNKNOWN
     Route: 065
     Dates: start: 20200727
  10. RED BLOOD CELLS [Concomitant]
     Active Substance: HUMAN RED BLOOD CELL
     Indication: ANAEMIA
     Dosage: 2 U, UNKNOWN
     Route: 042
     Dates: start: 20200722

REACTIONS (2)
  - Platelet count decreased [Not Recovered/Not Resolved]
  - Death [Fatal]

NARRATIVE: CASE EVENT DATE: 20200722
